FAERS Safety Report 4674203-5 (Version None)
Quarter: 2005Q2

REPORT INFORMATION
  Report Type: 
  Country: None (occurrence: None)
  Receive Date: 20050524
  Receipt Date: 20050511
  Transmission Date: 20051028
  Serious: Yes (Hospitalization)
  Sender: FDA-Public Use
  Company Number: USA050597817

PATIENT
  Age: 61 Year

DRUGS (6)
  1. CYMBALTA [Suspect]
     Indication: PAIN
     Dosage: 30 MG DAY
     Dates: start: 20050413, end: 20050420
  2. MOTRIN (IBUPROFEN) [Concomitant]
  3. DICLOFENAC [Concomitant]
  4. SYNTHROID [Concomitant]
  5. VYTORIN [Concomitant]
  6. DIOVAN [Concomitant]

REACTIONS (2)
  - GASTRIC ULCER HAEMORRHAGE [None]
  - HAEMOGLOBIN DECREASED [None]
